FAERS Safety Report 5296457-7 (Version None)
Quarter: 2007Q2

REPORT INFORMATION
  Report Type: 
  Country: None (occurrence: None)
  Receive Date: 20070413
  Receipt Date: 20070409
  Transmission Date: 20071010
  Serious: Yes (Hospitalization)
  Sender: FDA-Public Use
  Company Number: 2004UW18411

PATIENT
  Age: 65 Year
  Sex: Male

DRUGS (10)
  1. IRESSA [Suspect]
     Indication: NON-SMALL CELL LUNG CANCER
     Route: 048
     Dates: start: 20040818, end: 20040819
  2. IRESSA [Suspect]
     Route: 048
  3. DOCETAXEL [Suspect]
     Dates: start: 20040820
  4. LIPITOR [Concomitant]
     Route: 048
  5. COZAAR [Concomitant]
     Route: 048
  6. LASIX [Concomitant]
     Route: 048
  7. ALDACTONE [Concomitant]
     Route: 048
  8. FOLIC ACID [Concomitant]
  9. ASPIRIN [Concomitant]
     Route: 048
  10. DECADRON [Concomitant]
     Route: 048

REACTIONS (5)
  - BILIARY DILATATION [None]
  - CHOLELITHIASIS [None]
  - FEBRILE NEUTROPENIA [None]
  - HYPERBILIRUBINAEMIA [None]
  - RASH [None]
